FAERS Safety Report 5950256-9 (Version None)
Quarter: 2008Q4

REPORT INFORMATION
  Report Type: 
  Country: None (occurrence: None)
  Receive Date: 20081112
  Receipt Date: 20081028
  Transmission Date: 20090506
  Serious: Yes (Other)
  Sender: FDA-Public Use
  Company Number: PHHY2008IT26771

PATIENT
  Sex: Female

DRUGS (3)
  1. FEMARA [Suspect]
     Indication: BREAST CANCER
     Dosage: 2.5 MG/DAY
     Route: 048
     Dates: start: 20080709, end: 20081010
  2. MUSCORIL [Concomitant]
     Dosage: 4 MG/2 ML
     Route: 030
  3. VOLTAREN [Concomitant]
     Dosage: 75 G/3ML
     Route: 030

REACTIONS (2)
  - ARTHRALGIA [None]
  - DERMATITIS BULLOUS [None]
